FAERS Safety Report 10232582 (Version 1)
Quarter: 2014Q2

REPORT INFORMATION
  Report Type: Report from Study
  Country: FR (occurrence: FR)
  Receive Date: 20140612
  Receipt Date: 20140612
  Transmission Date: 20141212
  Serious: Yes (Hospitalization)
  Sender: FDA-Public Use
  Company Number: FR-ROCHE-1406243

PATIENT
  Age: 60 Year
  Sex: Female
  Weight: 52 kg

DRUGS (6)
  1. CAPECITABINE [Suspect]
     Indication: COLON CANCER
     Dosage: ON 01/JUL/2011, MOST RECEENT DOSE PRIOR TO SAE
     Route: 048
     Dates: start: 20110527
  2. CAPECITABINE [Suspect]
     Indication: RECTAL CANCER
  3. BEVACIZUMAB [Suspect]
     Indication: COLON CANCER
     Dosage: ON 24/JUN/2011, MOST RECEENT DOSE PRIOR TO SAE
     Route: 042
     Dates: start: 20110527
  4. BEVACIZUMAB [Suspect]
     Indication: RECTAL CANCER
  5. OXALIPLATIN [Suspect]
     Indication: COLON CANCER
     Dosage: ON 24/JUN/2011, MOST RECEENT DOSE PRIOR TO SAE
     Route: 042
     Dates: start: 20110527
  6. OXALIPLATIN [Suspect]
     Indication: RECTAL CANCER

REACTIONS (1)
  - General physical health deterioration [Unknown]
